FAERS Safety Report 15013208 (Version 2)
Quarter: 2018Q3

REPORT INFORMATION
  Report Type: Spontaneous
  Country: US (occurrence: US)
  Receive Date: 20180614
  Receipt Date: 20180901
  Transmission Date: 20181010
  Serious: Yes (Other)
  Sender: FDA-Public Use
  Company Number: US-009507513-1806USA001781

PATIENT
  Sex: Male

DRUGS (4)
  1. LISINOPRIL. [Concomitant]
     Active Substance: LISINOPRIL
     Dosage: 20 MG, QD
     Dates: start: 201608
  2. TICE BCG [Suspect]
     Active Substance: BACILLUS CALMETTE-GUERIN SUBSTRAIN TICE LIVE ANTIGEN
     Dosage: ONCE A WEEK FOR 3 WEEKS EVERY 3?4 MONTHS
     Route: 043
     Dates: start: 201803
  3. RECONSTITUTION SYSTEM [Concomitant]
     Indication: BLADDER CANCER
     Dosage: UNK
     Dates: start: 201608
  4. TICE BCG [Suspect]
     Active Substance: BACILLUS CALMETTE-GUERIN SUBSTRAIN TICE LIVE ANTIGEN
     Indication: BLADDER CANCER
     Dosage: ONCE A WEEK FOR 3 WEEKS EVERY 3?4 MONTHS
     Route: 043
     Dates: start: 201708

REACTIONS (1)
  - Metastases to lymph nodes [Not Recovered/Not Resolved]
